FAERS Safety Report 10978843 (Version 2)
Quarter: 2015Q2

REPORT INFORMATION
  Report Type: Spontaneous
  Country: PL (occurrence: PL)
  Receive Date: 20150402
  Receipt Date: 20150609
  Transmission Date: 20150821
  Serious: Yes (Other)
  Sender: FDA-Public Use
  Company Number: PL-TEVA-551398ISR

PATIENT
  Age: 17 Year
  Sex: Male

DRUGS (3)
  1. CISPLATIN. [Suspect]
     Active Substance: CISPLATIN
     Dosage: WEEKLY FOR 7 WEEKS
  2. CISPLATIN. [Suspect]
     Active Substance: CISPLATIN
     Dosage: 3 CYCLES EVERY 3 WEEKS
  3. 5-FLUOROURACIL [Concomitant]
     Active Substance: FLUOROURACIL
     Dosage: 3 CYCLES EVERY 3 WEEKS

REACTIONS (3)
  - Cachexia [Recovered/Resolved]
  - Stomatitis [Recovered/Resolved]
  - Radiation skin injury [Recovered/Resolved]
